FAERS Safety Report 8373767-8 (Version None)
Quarter: 2012Q2

REPORT INFORMATION
  Report Type: 
  Country: None (occurrence: None)
  Receive Date: 20120521
  Receipt Date: 20120507
  Transmission Date: 20120825
  Serious: Yes (Other)
  Sender: FDA-Public Use
  Company Number: CH-ROCHE-1069107

PATIENT
  Age: 79 Year
  Sex: Female

DRUGS (8)
  1. REMERON [Concomitant]
  2. LUCENTIS [Suspect]
     Route: 050
     Dates: start: 20120411
  3. PRAVASTATIN [Concomitant]
  4. NEBIVOLOL [Concomitant]
  5. VENLAFAXINE [Concomitant]
  6. LISINOPRIL [Concomitant]
  7. LUCENTIS [Suspect]
     Indication: AGE-RELATED MACULAR DEGENERATION
     Route: 050
     Dates: start: 20120314
  8. MARCOUMAR [Concomitant]

REACTIONS (2)
  - RENAL DISORDER [None]
  - VASCULITIS [None]
